FAERS Safety Report 9116912 (Version 1)
Quarter: 2013Q1

REPORT INFORMATION
  Report Type: Spontaneous
  Country: US (occurrence: US)
  Receive Date: 20130225
  Receipt Date: 20130225
  Transmission Date: 20140127
  Serious: No
  Sender: FDA-Public Use
  Company Number: US-BAYER-2013-020115

PATIENT
  Age: 48 Year
  Sex: Female

DRUGS (1)
  1. MIRENA [Suspect]
     Dosage: 20 MCG/24HR, CONT
     Route: 015
     Dates: start: 201302

REACTIONS (5)
  - Amenorrhoea [None]
  - Menorrhagia [None]
  - Dysmenorrhoea [None]
  - Dyspareunia [None]
  - Orgasm abnormal [None]
